FAERS Safety Report 16792946 (Version 1)
Quarter: 2019Q3

REPORT INFORMATION
  Report Type: Spontaneous
  Country: TW (occurrence: TW)
  Receive Date: 20190910
  Receipt Date: 20190910
  Transmission Date: 20191005
  Serious: Yes (Other)
  Sender: FDA-Public Use
  Company Number: TW-AMGEN-TWNSP2019146553

PATIENT
  Age: 74 Year
  Sex: Female

DRUGS (4)
  1. CYCLOSPORIN A [Concomitant]
     Active Substance: CYCLOSPORINE
     Dosage: UNK UNK, QD
  2. ENBREL [Suspect]
     Active Substance: ETANERCEPT
     Indication: RHEUMATOID ARTHRITIS
     Dosage: 25 MILLIGRAM, 2 TIMES/WK
     Route: 058
     Dates: start: 20140318
  3. SALAZINE [Concomitant]
     Active Substance: SULFASALAZINE
     Dosage: UNK, BID
  4. METHOTREXATE. [Concomitant]
     Active Substance: METHOTREXATE
     Dosage: UNK UNK, QW

REACTIONS (1)
  - Osteoarthritis [Not Recovered/Not Resolved]
